FAERS Safety Report 5508686-5 (Version None)
Quarter: 2007Q4

REPORT INFORMATION
  Report Type: 
  Country: None (occurrence: None)
  Receive Date: 20071107
  Receipt Date: 20071102
  Transmission Date: 20080405
  Serious: Yes (Death)
  Sender: FDA-Public Use
  Company Number: IT-ABBOTT-07P-083-0423362-00

PATIENT
  Age: 69 Year
  Sex: Male

DRUGS (1)
  1. SEVOFLURANE [Suspect]
     Indication: DRUG USE FOR UNKNOWN INDICATION
     Dosage: NOT REPORTED

REACTIONS (6)
  - CARDIAC FAILURE [None]
  - COAGULOPATHY [None]
  - COMA [None]
  - HEPATIC NECROSIS [None]
  - RENAL FAILURE [None]
  - RESPIRATORY FAILURE [None]
